FAERS Safety Report 14728476 (Version 2)
Quarter: 2018Q2

REPORT INFORMATION
  Report Type: Report from Study
  Country: US (occurrence: US)
  Receive Date: 20180406
  Receipt Date: 20180409
  Transmission Date: 20180711
  Serious: Yes (Hospitalization, Other)
  Sender: FDA-Public Use
  Company Number: US-MYLANLABS-2018M1021624

PATIENT
  Age: 45 Year
  Sex: Female
  Weight: 85.27 kg

DRUGS (5)
  1. METHYLPREDNISOLONE. [Suspect]
     Active Substance: METHYLPREDNISOLONE
     Dosage: 50 MG, UNK
     Route: 042
     Dates: start: 20170314, end: 20170420
  2. RUXOLITINIB [Suspect]
     Active Substance: RUXOLITINIB
     Dosage: 5 MG, QD
     Route: 048
     Dates: start: 20170407, end: 20170420
  3. METHYLPREDNISOLONE. [Suspect]
     Active Substance: METHYLPREDNISOLONE
     Indication: ACUTE GRAFT VERSUS HOST DISEASE IN SKIN
     Dosage: 70 MG, BID
     Route: 042
     Dates: start: 20170301, end: 20170313
  4. PREDNISONE. [Suspect]
     Active Substance: PREDNISONE
     Indication: ACUTE GRAFT VERSUS HOST DISEASE IN SKIN
     Dosage: 40 MG, BID
     Route: 048
     Dates: start: 20170301, end: 20170420
  5. RUXOLITINIB [Suspect]
     Active Substance: RUXOLITINIB
     Indication: ACUTE GRAFT VERSUS HOST DISEASE IN SKIN
     Dosage: 5 MG,BID
     Route: 048
     Dates: start: 20170301

REACTIONS (2)
  - Back pain [Recovered/Resolved with Sequelae]
  - Hepatic infection fungal [Recovering/Resolving]

NARRATIVE: CASE EVENT DATE: 20170310
